FAERS Safety Report 8924327 (Version 1)
Quarter: 2012Q4

REPORT INFORMATION
  Report Type: 
  Country: JP (occurrence: JP)
  Receive Date: 20121126
  Receipt Date: 20121126
  Transmission Date: 20130627
  Serious: Yes (Other)
  Sender: FDA-Public Use
  Company Number: JP-GLAXOSMITHKLINE-B0846414A

PATIENT
  Sex: Male

DRUGS (1)
  1. DERMOVATE [Suspect]
     Indication: PRODUCT USED FOR UNKNOWN INDICATION
     Route: 061

REACTIONS (3)
  - Immunosuppression [Not Recovered/Not Resolved]
  - Opportunistic infection [Unknown]
  - Infection [Unknown]
